FAERS Safety Report 17370178 (Version 1)
Quarter: 2020Q1

REPORT INFORMATION
  Report Type: Spontaneous
  Country: ZA (occurrence: ZA)
  Receive Date: 20200205
  Receipt Date: 20200205
  Transmission Date: 20200409
  Serious: Yes (Other)
  Sender: FDA-Public Use
  Company Number: ZA-BRISTOL-MYERS SQUIBB COMPANY-BMS-2020-008830

PATIENT
  Age: 82 Year

DRUGS (1)
  1. APIXABAN [Suspect]
     Active Substance: APIXABAN
     Indication: PRODUCT USED FOR UNKNOWN INDICATION
     Route: 065

REACTIONS (5)
  - Arrhythmia [Unknown]
  - Emphysema [Unknown]
  - Diabetes mellitus [Unknown]
  - Overdose [Unknown]
  - Chronic obstructive pulmonary disease [Unknown]
